FAERS Safety Report 9736083 (Version 2)
Quarter: 2013Q4

REPORT INFORMATION
  Report Type: Spontaneous
  Country: IT (occurrence: IT)
  Receive Date: 20131206
  Receipt Date: 20131219
  Transmission Date: 20140711
  Serious: Yes (Life-Threatening, Other)
  Sender: FDA-Public Use
  Company Number: IT-GILEAD-2013-0089347

PATIENT
  Age: 54 Year
  Sex: Female

DRUGS (3)
  1. TENOFOVIR DISOPROXIL FUMARATE [Suspect]
     Indication: HIV INFECTION
     Dosage: 245 MG, QD
     Route: 048
     Dates: start: 20130803, end: 20131113
  2. DARUNAVIR [Concomitant]
  3. RITONAVIR [Concomitant]

REACTIONS (2)
  - Anaemia [Not Recovered/Not Resolved]
  - Renal failure acute [Not Recovered/Not Resolved]
